FAERS Safety Report 5968275-5 (Version None)
Quarter: 2008Q4

REPORT INFORMATION
  Report Type: 
  Country: None (occurrence: None)
  Receive Date: 20081126
  Receipt Date: 20081118
  Transmission Date: 20090506
  Serious: Yes (Hospitalization)
  Sender: FDA-Public Use
  Company Number: FR-ASTRAZENECA-2008CG01688

PATIENT
  Age: 31672 Day
  Sex: Male

DRUGS (9)
  1. XYLOCAINE [Suspect]
     Indication: MOUTH ULCERATION
     Route: 002
     Dates: start: 20081010, end: 20081014
  2. XYLOCAINE [Interacting]
     Indication: OESOPHAGEAL ULCER
     Route: 002
     Dates: start: 20081010, end: 20081014
  3. MICONAZOLE NITRATE [Interacting]
     Indication: APHTHOUS STOMATITIS
     Route: 002
     Dates: start: 20081010, end: 20081014
  4. MONONAXY [Interacting]
     Indication: MOUTH ULCERATION
     Route: 048
     Dates: start: 20081010, end: 20081014
  5. MONONAXY [Interacting]
     Indication: OESOPHAGEAL ULCER
     Route: 048
     Dates: start: 20081010, end: 20081014
  6. DIAMICRON [Interacting]
     Indication: TYPE 2 DIABETES MELLITUS
     Route: 048
     Dates: end: 20081014
  7. AVODART [Concomitant]
     Route: 048
  8. ECAZIDE [Concomitant]
     Route: 048
     Dates: end: 20081014
  9. TENORMIN [Concomitant]
     Route: 048

REACTIONS (4)
  - CONFUSIONAL STATE [None]
  - DRUG INTERACTION [None]
  - HYPOGLYCAEMIA [None]
  - MALAISE [None]
